FAERS Safety Report 22153064 (Version 1)
Quarter: 2023Q1

REPORT INFORMATION
  Report Type: Spontaneous
  Country: CN (occurrence: CN)
  Receive Date: 20230329
  Receipt Date: 20230329
  Transmission Date: 20230418
  Serious: Yes (Other)
  Sender: FDA-Public Use
  Company Number: CN-009507513-2303CHN008845

PATIENT
  Age: 93 Year
  Sex: Male
  Weight: 50 kg

DRUGS (4)
  1. CILASTATIN SODIUM\IMIPENEM [Suspect]
     Active Substance: CILASTATIN SODIUM\IMIPENEM
     Indication: Anti-infective therapy
     Dosage: 1 GRAM EVERY 8 HOURS (Q8H)
     Route: 041
     Dates: start: 20230308, end: 20230311
  2. CILASTATIN SODIUM\IMIPENEM [Suspect]
     Active Substance: CILASTATIN SODIUM\IMIPENEM
     Dosage: 1 GRAM EVERY 12 HOURS (Q12H)
     Route: 041
     Dates: start: 20230311, end: 20230311
  3. SODIUM CHLORIDE [Concomitant]
     Active Substance: SODIUM CHLORIDE
     Indication: Medication dilution
     Dosage: 50 ML Q8H MANUFACTURER: SHIJIAZHUANG FOUR MEDICINES
     Route: 041
     Dates: start: 20230308, end: 20230311
  4. SODIUM CHLORIDE [Concomitant]
     Active Substance: SODIUM CHLORIDE
     Dosage: 50 ML Q12H MANUFACTURER: SHIJIAZHUANG FOUR MEDICINES
     Route: 041
     Dates: start: 20230311, end: 20230311

REACTIONS (1)
  - Epilepsy [Recovered/Resolved]

NARRATIVE: CASE EVENT DATE: 20230311
